FAERS Safety Report 17435134 (Version 1)
Quarter: 2020Q1

REPORT INFORMATION
  Report Type: Spontaneous
  Country: US (occurrence: US)
  Receive Date: 20200218
  Receipt Date: 20200218
  Transmission Date: 20200409
  Serious: No
  Sender: FDA-Public Use
  Company Number: None

PATIENT
  Age: 61 Year
  Sex: Female
  Weight: 78.75 kg

DRUGS (13)
  1. CLOBETASOL PROPIONATE CREAM [Suspect]
     Active Substance: CLOBETASOL PROPIONATE
     Indication: LICHEN SCLEROSUS
     Dosage: ?          QUANTITY:1 FINGERTIP;?
     Route: 067
  2. LISINOPRIL. [Concomitant]
     Active Substance: LISINOPRIL
  3. IRON [Concomitant]
     Active Substance: IRON
  4. CLOBETASOL CREAM [Concomitant]
     Active Substance: CLOBETASOL
  5. VIT 12 [Concomitant]
  6. STOOL SOFTENER (DOCUSATE) [Concomitant]
     Active Substance: DOCUSATE
  7. FIBER [Concomitant]
     Active Substance: PSYLLIUM HUSK
  8. CALCIUM [Concomitant]
     Active Substance: CALCIUM
  9. CRANBERRY. [Concomitant]
     Active Substance: CRANBERRY
  10. LOVASTATIN. [Concomitant]
     Active Substance: LOVASTATIN
  11. VIT D [Concomitant]
     Active Substance: VITAMIN D NOS
  12. FOMATIDINE [Concomitant]
  13. VITAMIN C [Concomitant]
     Active Substance: ASCORBIC ACID

REACTIONS (2)
  - Vaginal disorder [None]
  - Product complaint [None]

NARRATIVE: CASE EVENT DATE: 20200218
